FAERS Safety Report 4957834-4 (Version None)
Quarter: 2006Q1

REPORT INFORMATION
  Report Type: 
  Country: None (occurrence: None)
  Receive Date: 20060324
  Receipt Date: 20060313
  Transmission Date: 20060701
  Serious: Yes (Death)
  Sender: FDA-Public Use
  Company Number: 2006036427

PATIENT
  Age: 45 Year
  Sex: Female

DRUGS (3)
  1. SERTRALINE [Suspect]
     Indication: ILL-DEFINED DISORDER
  2. METHADONE HCL [Suspect]
     Indication: ILL-DEFINED DISORDER
  3. ALCOHOL (ETHANOL) [Concomitant]
     Indication: ILL-DEFINED DISORDER

REACTIONS (7)
  - AGGRESSION [None]
  - COMPLETED SUICIDE [None]
  - DIABETIC KETOACIDOSIS [None]
  - DRUG TOXICITY [None]
  - HEPATIC STEATOSIS [None]
  - MULTIPLE DRUG OVERDOSE INTENTIONAL [None]
  - NEPHROPATHY [None]
